FAERS Safety Report 6897254-9 (Version None)
Quarter: 2010Q3

REPORT INFORMATION
  Report Type: 
  Country: None (occurrence: None)
  Receive Date: 20100802
  Receipt Date: 20070508
  Transmission Date: 20110219
  Serious: No
  Sender: FDA-Public Use
  Company Number: US-PFIZER INC-2007017324

PATIENT
  Sex: Male

DRUGS (3)
  1. LYRICA [Suspect]
     Indication: HERPES ZOSTER
     Dates: start: 20060915, end: 20060919
  2. VALTREX [Concomitant]
     Route: 048
     Dates: start: 20060915, end: 20060922
  3. PERCOCET [Concomitant]
     Route: 048
     Dates: start: 20060915, end: 20060925

REACTIONS (1)
  - URTICARIA [None]
